FAERS Safety Report 9632556 (Version 2)
Quarter: 2014Q2

REPORT INFORMATION
  Report Type: Spontaneous
  Country: US (occurrence: US)
  Receive Date: 20131018
  Receipt Date: 20140403
  Transmission Date: 20141212
  Serious: Yes (Death, Hospitalization)
  Sender: FDA-Public Use
  Company Number: US-B.I. PHARMACEUTICALS,INC./RIDGEFIELD-2013-BI-33037BP

PATIENT
  Sex: Female
  Weight: 58.97 kg

DRUGS (13)
  1. PRADAXA [Suspect]
     Indication: ATRIAL FIBRILLATION
     Dosage: 150 MG
     Route: 065
     Dates: start: 20111215, end: 20121102
  2. BYSTOLIC [Concomitant]
     Dosage: 10 MG
     Route: 065
  3. LASIX [Concomitant]
     Dosage: 60 MG
     Route: 065
  4. CARDIZEM [Concomitant]
     Dosage: 120 MG
     Route: 065
  5. ZANTAC [Concomitant]
     Dosage: 300 MG
     Route: 065
  6. ATIVAN [Concomitant]
     Dosage: 2 MG
     Route: 065
  7. SIMVASTATIN [Concomitant]
     Dosage: 40 MG
     Route: 065
  8. SYNTHROID [Concomitant]
     Indication: HYPOTHYROIDISM
     Dosage: 75 MCG
     Route: 065
  9. LORATADINE [Concomitant]
     Dosage: 10 MG
     Route: 065
  10. BENAZEPRIL HCTZ [Concomitant]
     Route: 065
  11. GLIPIZIDE [Concomitant]
     Route: 065
  12. PERCOCET [Concomitant]
     Route: 065
  13. ASPIRIN [Concomitant]
     Dosage: 81 MG
     Route: 048

REACTIONS (5)
  - Lower gastrointestinal haemorrhage [Fatal]
  - Acute myocardial infarction [Fatal]
  - Haemorrhagic anaemia [Unknown]
  - Coagulopathy [Unknown]
  - Renal failure acute [Unknown]
